FAERS Safety Report 7203156-0 (Version None)
Quarter: 2010Q4

REPORT INFORMATION
  Report Type: 
  Country: None (occurrence: None)
  Receive Date: 20101229
  Receipt Date: 20101217
  Transmission Date: 20110411
  Serious: Yes (Other)
  Sender: FDA-Public Use
  Company Number: DE-MYLANLABS-2010S1023025

PATIENT
  Age: 56 Year
  Sex: Male

DRUGS (1)
  1. DOXYCYCLINE [Suspect]
     Indication: PERIODONTAL DISEASE
     Route: 048

REACTIONS (2)
  - PRURITUS [None]
  - RASH PUSTULAR [None]
